FAERS Safety Report 7081538-8 (Version None)
Quarter: 2010Q4

REPORT INFORMATION
  Report Type: 
  Country: None (occurrence: None)
  Receive Date: 20101103
  Receipt Date: 20101019
  Transmission Date: 20110411
  Serious: Yes (Death)
  Sender: FDA-Public Use
  Company Number: US-MERCK-1010USA02210

PATIENT
  Age: 48 Year
  Sex: Female

DRUGS (12)
  1. PRINIVIL [Suspect]
     Route: 048
  2. HYDROCODONE [Suspect]
     Route: 065
  3. THEOPHYLLINE [Suspect]
     Route: 065
  4. ACETAMINOPHEN [Suspect]
     Route: 065
  5. FENTANYL [Suspect]
     Route: 065
  6. DULOXETINE HYDROCHLORIDE [Suspect]
     Route: 065
  7. GABAPENTIN [Suspect]
     Route: 065
  8. LORAZEPAM [Suspect]
     Route: 065
  9. PANTOPRAZOLE [Suspect]
     Route: 065
  10. SALSALATE [Suspect]
     Route: 065
  11. MECLIZINE HYDROCHLORIDE [Suspect]
     Route: 065
  12. TEMAZEPAM [Suspect]
     Route: 065

REACTIONS (1)
  - DRUG TOXICITY [None]
